FAERS Safety Report 7764302-3 (Version None)
Quarter: 2011Q3

REPORT INFORMATION
  Report Type: 
  Country: None (occurrence: None)
  Receive Date: 20110919
  Receipt Date: 20110912
  Transmission Date: 20111222
  Serious: Yes (Hospitalization)
  Sender: FDA-Public Use
  Company Number: 1040987

PATIENT
  Age: 60 Year
  Sex: Male

DRUGS (4)
  1. CYCLOPHOSPHAMIDE [Suspect]
     Indication: B-CELL LYMPHOMA
  2. (RITUXIMAB) [Suspect]
     Indication: B-CELL LYMPHOMA
  3. PREDNISOLONE [Suspect]
     Indication: B-CELL LYMPHOMA
  4. VINCRISTINE SULFATE [Suspect]
     Indication: B-CELL LYMPHOMA

REACTIONS (8)
  - CENTRAL NERVOUS SYSTEM NECROSIS [None]
  - NEPHROPATHY TOXIC [None]
  - CEREBRAL CYST [None]
  - BRAIN OEDEMA [None]
  - CEREBRAL FUNGAL INFECTION [None]
  - INTRAVENTRICULAR HAEMORRHAGE [None]
  - CEREBELLAR SYNDROME [None]
  - SEPSIS [None]
